FAERS Safety Report 9193036 (Version 4)
Quarter: 2013Q3

REPORT INFORMATION
  Report Type: Report from Study
  Country: US (occurrence: US)
  Receive Date: 20130327
  Receipt Date: 20130716
  Transmission Date: 20140515
  Serious: No
  Sender: FDA-Public Use
  Company Number: PHEH2013US007019

PATIENT
  Age: 77 Year
  Sex: Female

DRUGS (15)
  1. TASIGNA [Suspect]
     Indication: CHRONIC MYELOID LEUKAEMIA
     Dosage: 400 MG, BID
     Route: 048
     Dates: start: 20130305
  2. SYNTHROID [Concomitant]
  3. BYSTOLIC [Concomitant]
  4. SIMVASTATIN [Concomitant]
  5. TRAMADOL HCL [Concomitant]
  6. ASPIRIN [Concomitant]
  7. CALCIUM [Concomitant]
  8. FISH OIL [Concomitant]
  9. MIRALAX [Concomitant]
  10. MULTIVITAMINS [Concomitant]
  11. TYLENOL [Concomitant]
  12. ALEVE [Concomitant]
  13. ONDANSETRON [Concomitant]
  14. LEVOTHYROXINE SODIUM [Concomitant]
  15. VITAMIN D3 [Concomitant]

REACTIONS (4)
  - Dermatitis psoriasiform [Not Recovered/Not Resolved]
  - Rash [Not Recovered/Not Resolved]
  - Pruritus [Not Recovered/Not Resolved]
  - Skin discolouration [Not Recovered/Not Resolved]
